FAERS Safety Report 10173629 (Version 1)
Quarter: 2014Q2

REPORT INFORMATION
  Report Type: Report from Study
  Country: US (occurrence: US)
  Receive Date: 20140515
  Receipt Date: 20140515
  Transmission Date: 20141212
  Serious: Yes (Other)
  Sender: FDA-Public Use
  Company Number: US-GILEAD-2014-0101906

PATIENT
  Sex: Male

DRUGS (3)
  1. SOFOSBUVIR [Suspect]
     Indication: HEPATITIS C
     Dosage: 400 MG, UNK
     Route: 048
     Dates: start: 201401
  2. RIBAVIRIN [Concomitant]
  3. PEGINTERFERON ALFA [Concomitant]

REACTIONS (3)
  - Liver function test abnormal [Unknown]
  - Faeces pale [Unknown]
  - Unevaluable event [Unknown]
